FAERS Safety Report 5981116-5 (Version None)
Quarter: 2008Q4

REPORT INFORMATION
  Report Type: 
  Country: None (occurrence: None)
  Receive Date: 20081202
  Receipt Date: 20081202
  Transmission Date: 20090506
  Serious: Yes (Disabling)
  Sender: FDA-Public Use
  Company Number: None

PATIENT
  Age: 64 Year
  Sex: Male
  Weight: 97.0698 kg

DRUGS (1)
  1. NOVOLOG [Suspect]
     Dosage: 10-12 UNITS WITH FOOD 3 TIMES PER DAY SQ
     Route: 058

REACTIONS (4)
  - BLOOD GLUCOSE INCREASED [None]
  - DEVICE FAILURE [None]
  - INCORRECT DOSE ADMINISTERED [None]
  - PRODUCT QUALITY ISSUE [None]
